FAERS Safety Report 5630563-X (Version None)
Quarter: 2008Q1

REPORT INFORMATION
  Report Type: 
  Country: None (occurrence: None)
  Receive Date: 20080219
  Receipt Date: 20080212
  Transmission Date: 20080703
  Serious: Yes (Death)
  Sender: FDA-Public Use
  Company Number: A0699235A

PATIENT
  Age: 54 Year
  Sex: Male
  Weight: 105.2 kg

DRUGS (10)
  1. ADVAIR DISKUS 100/50 [Suspect]
     Dosage: 1PUFF TWICE PER DAY
     Route: 055
     Dates: start: 20020227, end: 20020302
  2. ALLERGY MEDICATION [Concomitant]
  3. CLARITIN D 12 HOURS [Concomitant]
  4. PROVENTIL GENTLEHALER [Concomitant]
  5. VIAGRA [Concomitant]
  6. FLUMADINE [Concomitant]
     Dosage: 100MG TWICE PER DAY
     Route: 048
     Dates: start: 20020227
  7. ZITHROMAX [Concomitant]
     Dates: start: 20020212
  8. MEDROL [Concomitant]
     Dates: start: 20020212
  9. BIOHIST-LA [Concomitant]
     Dates: start: 20020214
  10. ROCEPHIN [Concomitant]
     Route: 030
     Dates: start: 20020301

REACTIONS (7)
  - ANOXIC ENCEPHALOPATHY [None]
  - CARDIAC ARREST [None]
  - LOSS OF CONSCIOUSNESS [None]
  - LUNG HYPERINFLATION [None]
  - PUPIL FIXED [None]
  - RESPIRATORY ARREST [None]
  - SKIN DISCOLOURATION [None]
